FAERS Safety Report 20668418 (Version 1)
Quarter: 2022Q2

REPORT INFORMATION
  Report Type: Spontaneous
  Country: DE (occurrence: None)
  Receive Date: 20220404
  Receipt Date: 20220404
  Transmission Date: 20220721
  Serious: Yes (Other)
  Sender: FDA-Public Use
  Company Number: DE-MLMSERVICE-20220322-3446682-1

PATIENT
  Sex: Female

DRUGS (6)
  1. MOXIFLOXACIN [Suspect]
     Active Substance: MOXIFLOXACIN
     Indication: Tuberculosis
  2. PYRAZINAMIDE [Concomitant]
     Active Substance: PYRAZINAMIDE
     Indication: Tuberculosis
  3. PROTIONAMIDE [Concomitant]
     Active Substance: PROTIONAMIDE
     Indication: Tuberculosis
  4. AMIKACIN [Concomitant]
     Active Substance: AMIKACIN
     Indication: Tuberculosis
  5. TERIZIDONE [Concomitant]
     Active Substance: TERIZIDONE
     Indication: Tuberculosis
  6. ETHAMBUTOL. [Concomitant]
     Indication: Tuberculosis

REACTIONS (2)
  - Pseudomembranous colitis [Recovered/Resolved with Sequelae]
  - Drug eruption [Unknown]
